FAERS Safety Report 24581425 (Version 1)
Quarter: 2024Q4

REPORT INFORMATION
  Report Type: Spontaneous
  Country: CN (occurrence: CN)
  Receive Date: 20241105
  Receipt Date: 20241105
  Transmission Date: 20250115
  Serious: Yes (Other)
  Sender: BAYER HEALTHCARE PHARMACEUTICALS INC.
  Company Number: CN-BAYER-2024A157550

PATIENT
  Age: 58 Year
  Sex: Male
  Weight: 64 kg

DRUGS (2)
  1. STIVARGA [Suspect]
     Active Substance: REGORAFENIB MONOHYDRATE
     Indication: Targeted cancer therapy
     Dosage: 120 MG, QD
     Route: 048
     Dates: start: 20241012, end: 20241026
  2. BEVACIZUMAB [Suspect]
     Active Substance: BEVACIZUMAB
     Indication: Targeted cancer therapy
     Dosage: 480 MG, QD PLUS NORMAL SALINE 250ML
     Route: 041
     Dates: start: 20241012, end: 20241012

REACTIONS (5)
  - Myelosuppression [Recovering/Resolving]
  - Prescribed underdose [None]
  - Underdose [None]
  - Incorrect product administration duration [None]
  - Product prescribing issue [None]

NARRATIVE: CASE EVENT DATE: 20241012
